FAERS Safety Report 7574986-0 (Version None)
Quarter: 2011Q2

REPORT INFORMATION
  Report Type: 
  Country: None (occurrence: None)
  Receive Date: 20110627
  Receipt Date: 20110622
  Transmission Date: 20111010
  Serious: Yes (Other)
  Sender: FDA-Public Use
  Company Number: US-PFIZER INC-2011139556

PATIENT
  Sex: Female
  Weight: 68 kg

DRUGS (7)
  1. SYNTHROID [Concomitant]
     Indication: HYPOTHYROIDISM
     Dosage: UNK
     Route: 048
  2. CALCIUM [Concomitant]
     Dosage: UNK
  3. LIPITOR [Concomitant]
     Indication: BLOOD CHOLESTEROL INCREASED
     Dosage: UNK
     Route: 048
  4. ZYRTEC [Concomitant]
     Indication: SINUS DISORDER
     Dosage: UNK
     Route: 048
  5. PRILOSEC [Concomitant]
     Indication: ULCER
     Dosage: UNK
     Route: 048
  6. CHANTIX [Suspect]
     Indication: SMOKING CESSATION THERAPY
     Dosage: UNK
     Route: 048
  7. CHANTIX [Suspect]
     Dosage: UNK
     Dates: start: 20110601

REACTIONS (2)
  - AGITATION [None]
  - EMOTIONAL DISORDER [None]
